FAERS Safety Report 12739862 (Version 8)
Quarter: 2017Q1

REPORT INFORMATION
  Report Type: Report from Study
  Country: CH (occurrence: CH)
  Receive Date: 20160913
  Receipt Date: 20170131
  Transmission Date: 20170428
  Serious: Yes (Hospitalization)
  Sender: FDA-Public Use
  Company Number: CH-AMGEN-CHECT2016121830

PATIENT
  Age: 58 Year
  Sex: Female
  Weight: 61.5 kg

DRUGS (11)
  1. ROSUVASTATIN. [Concomitant]
     Active Substance: ROSUVASTATIN
     Dosage: 5 MG, UNK
     Route: 048
     Dates: start: 19930101, end: 20160817
  2. TALIMOGENE LAHERPAREPVEC [Suspect]
     Active Substance: TALIMOGENE LAHERPAREPVEC
     Indication: SQUAMOUS CELL CARCINOMA OF HEAD AND NECK
     Dosage: 8 ML, Q3WK
     Route: 026
     Dates: start: 20160817
  3. PEMBROLIZUMAB. [Suspect]
     Active Substance: PEMBROLIZUMAB
     Indication: SQUAMOUS CELL CARCINOMA OF HEAD AND NECK
     Dosage: 200 MG, Q3WK
     Route: 042
     Dates: start: 20160817
  4. EUTHYROX [Concomitant]
     Active Substance: LEVOTHYROXINE SODIUM
     Dosage: 75 TO 100 MUG, UNK
     Route: 048
     Dates: start: 19930101, end: 20160905
  5. ASPIRIN. [Concomitant]
     Active Substance: ASPIRIN
     Dosage: 100 MG, UNK
     Route: 048
     Dates: start: 19950101, end: 20160817
  6. LYRICA [Concomitant]
     Active Substance: PREGABALIN
     Dosage: 25 MG, UNK
     Route: 048
     Dates: start: 20160805, end: 20161010
  7. PARACETAMOL [Concomitant]
     Active Substance: ACETAMINOPHEN
     Dosage: 1000 MG, UNK
     Route: 048
     Dates: start: 20160701
  8. MEFENAMIC ACID. [Concomitant]
     Active Substance: MEFENAMIC ACID
     Dosage: 500 MG, UNK
     Route: 048
     Dates: start: 20160701, end: 20160901
  9. MORPHINE [Concomitant]
     Active Substance: MORPHINE
     Dosage: 2.5 TO 5 MG, UNK
     Route: 048
     Dates: start: 20160805
  10. INSULIN [Concomitant]
     Active Substance: INSULIN NOS
     Dosage: UNK
     Route: 058
  11. ESCITALOPRAM [Concomitant]
     Active Substance: ESCITALOPRAM OXALATE
     Dosage: 10 MG, UNK
     Route: 048
     Dates: start: 20160823, end: 201610

REACTIONS (1)
  - Mucosal haemorrhage [Recovered/Resolved]

NARRATIVE: CASE EVENT DATE: 20160904
